FAERS Safety Report 13942888 (Version 1)
Quarter: 2017Q3

REPORT INFORMATION
  Report Type: Spontaneous
  Country: FR (occurrence: FR)
  Receive Date: 20170906
  Receipt Date: 20170906
  Transmission Date: 20171127
  Serious: Yes (Other)
  Sender: FDA-Public Use
  Company Number: FR-MERCK KGAA-2025573

PATIENT
  Age: 61 Year
  Sex: Female

DRUGS (5)
  1. NOVOTHYROX [Suspect]
     Active Substance: LEVOTHYROXINE SODIUM
     Indication: AUTOIMMUNE THYROIDITIS
     Route: 048
     Dates: start: 20170525
  2. ALDACTAZINE [Concomitant]
     Active Substance: ALTHIAZIDE\SPIRONOLACTONE
     Route: 048
  3. TEMERIT [Concomitant]
     Active Substance: NEBIVOLOL
     Route: 048
  4. NOVOTHYROX [Suspect]
     Active Substance: LEVOTHYROXINE SODIUM
     Route: 048
  5. DUOPLAVIN(NEFAZAN COMPUESTO) [Concomitant]
     Route: 048

REACTIONS (4)
  - Blood thyroid stimulating hormone abnormal [Recovering/Resolving]
  - Headache [Recovering/Resolving]
  - Product formulation issue [Unknown]
  - Vertigo [Recovering/Resolving]

NARRATIVE: CASE EVENT DATE: 20170623
